FAERS Safety Report 25546672 (Version 2)
Quarter: 2025Q4

REPORT INFORMATION
  Report Type: Spontaneous
  Country: US (occurrence: US)
  Receive Date: 20250713
  Receipt Date: 20251218
  Transmission Date: 20260118
  Serious: Yes (Other)
  Sender: AMGEN
  Company Number: US-AMGEN-USASP2025135813

PATIENT
  Age: 78 Year
  Sex: Male

DRUGS (3)
  1. XGEVA [Suspect]
     Active Substance: DENOSUMAB
     Indication: Plasma cell myeloma
     Dosage: 120 MILLIGRAM/1.7 ML (70 MG/ML)
     Route: 058
     Dates: start: 2022, end: 202506
  2. XGEVA [Suspect]
     Active Substance: DENOSUMAB
     Indication: Squamous cell carcinoma
  3. LIBTAYO [Concomitant]
     Active Substance: CEMIPLIMAB-RWLC
     Dosage: UNK

REACTIONS (2)
  - Osteonecrosis of jaw [Not Recovered/Not Resolved]
  - Ill-defined disorder [Unknown]
